FAERS Safety Report 13476709 (Version 1)
Quarter: 2017Q2

REPORT INFORMATION
  Report Type: Spontaneous
  Country: JP (occurrence: JP)
  Receive Date: 20170425
  Receipt Date: 20170425
  Transmission Date: 20170830
  Serious: Yes (Hospitalization)
  Sender: FDA-Public Use
  Company Number: JP-PFIZER INC-2017137640

PATIENT
  Age: 8 Decade
  Sex: Male

DRUGS (1)
  1. SUTENT [Suspect]
     Active Substance: SUNITINIB MALATE
     Indication: NEOADJUVANT THERAPY
     Dosage: 25 MG, DAILY (ON A CYCLE OF 4-WEEK-ON AND 2-WEEK-OFF)
     Route: 048

REACTIONS (1)
  - Tooth disorder [Unknown]
